FAERS Safety Report 14635560 (Version 10)
Quarter: 2018Q4

REPORT INFORMATION
  Report Type: Spontaneous
  Country: FR (occurrence: FR)
  Receive Date: 20180314
  Receipt Date: 20181206
  Transmission Date: 20190204
  Serious: Yes (Hospitalization, Congenital Anomaly, Other)
  Sender: FDA-Public Use
  Company Number: US-AUROBINDO-AUR-APL-2018-013521

PATIENT
  Sex: Male
  Weight: 2 kg

DRUGS (4)
  1. ISENTRESS [Suspect]
     Active Substance: RALTEGRAVIR POTASSIUM
     Dosage: UNK
     Route: 064
     Dates: end: 20170608
  2. EPIVIR [Suspect]
     Active Substance: LAMIVUDINE
     Indication: PRODUCT USED FOR UNKNOWN INDICATION
     Dosage: UNK
     Route: 064
     Dates: start: 20170608, end: 20170608
  3. LAMIVUDINE FILM-COATED TABLETS [Suspect]
     Active Substance: LAMIVUDINE
     Indication: HIV INFECTION
     Dosage: UNK
     Route: 064
  4. ISENTRESS [Suspect]
     Active Substance: RALTEGRAVIR POTASSIUM
     Indication: HIV INFECTION
     Dosage: UNK
     Route: 064

REACTIONS (9)
  - Tracheo-oesophageal fistula [Unknown]
  - Oesophageal atresia [Recovered/Resolved with Sequelae]
  - Tracheal deviation [Unknown]
  - Hypoxic-ischaemic encephalopathy [Unknown]
  - Ear malformation [Unknown]
  - Tracheal fistula repair [Unknown]
  - Congenital chylothorax [Unknown]
  - Foetal exposure during pregnancy [Recovered/Resolved]
  - Hypotonia [Unknown]

NARRATIVE: CASE EVENT DATE: 20170608
